FAERS Safety Report 11820393 (Version 1)
Quarter: 2015Q4

REPORT INFORMATION
  Report Type: Spontaneous
  Country: GB (occurrence: GB)
  Receive Date: 20151210
  Receipt Date: 20151210
  Transmission Date: 20160305
  Serious: Yes (Other)
  Sender: FDA-Public Use
  Company Number: GB-009507513-2004-07-0049

PATIENT
  Age: 24 Year
  Sex: Female

DRUGS (2)
  1. VIRAFERON [Suspect]
     Active Substance: INTERFERON ALFA-2B
     Indication: HEPATITIS C
     Dosage: DOSE: 150MCG, DURATION: 7 MONTH(S)
     Route: 058
     Dates: start: 200305, end: 200312
  2. RIBAVIRIN (WARRICK) [Suspect]
     Active Substance: RIBAVIRIN
     Indication: HEPATITIS C
     Dosage: DOSE: 1GM/QD, DURATION: 7 MONTH(S)
     Route: 048
     Dates: start: 200305, end: 200312

REACTIONS (2)
  - Maternal exposure timing unspecified [Unknown]
  - Abortion induced [Unknown]
